FAERS Safety Report 6839352-1 (Version None)
Quarter: 2010Q3

REPORT INFORMATION
  Report Type: 
  Country: None (occurrence: None)
  Receive Date: 20100714
  Receipt Date: 20100713
  Transmission Date: 20110219
  Serious: Yes (Death)
  Sender: FDA-Public Use
  Company Number: PHHY2010CA43297

PATIENT
  Sex: Female

DRUGS (8)
  1. ACLASTA [Suspect]
     Indication: OSTEOPOROSIS
     Dosage: UNK
     Route: 042
     Dates: start: 20090716
  2. DURAGESIC-100 [Concomitant]
  3. SUPEUDOL [Concomitant]
  4. CESAMET [Concomitant]
  5. CALCEIN [Concomitant]
  6. DRISDOL [Concomitant]
  7. NEURONTIN [Concomitant]
  8. SEROQUEL [Concomitant]

REACTIONS (2)
  - RENAL CANCER METASTATIC [None]
  - SURGERY [None]
